FAERS Safety Report 4356695-4 (Version None)
Quarter: 2004Q2

REPORT INFORMATION
  Report Type: 
  Country: None (occurrence: None)
  Receive Date: 20040511
  Receipt Date: 20040511
  Transmission Date: 20050107
  Serious: No
  Sender: FDA-Public Use
  Company Number: None

PATIENT
  Sex: Male
  Weight: 96 kg

DRUGS (6)
  1. MESNA [Suspect]
     Indication: BURKITT'S LYMPHOMA
     Dosage: 430 MG QD X 5 DAYS INTRAVENOUS
     Route: 042
     Dates: start: 20040320, end: 20040324
  2. VINCRISTINE [Suspect]
     Indication: BURKITT'S LYMPHOMA
     Dosage: 2 MG QD X 5 DAYS INTRAVENOUS
     Route: 042
     Dates: start: 20040320, end: 20040324
  3. METHOTREXATE [Concomitant]
  4. CYTARABINE [Concomitant]
  5. METHOTREXATE [Concomitant]
  6. ARA-C [Concomitant]

REACTIONS (10)
  - CREPITATIONS [None]
  - DEPRESSED LEVEL OF CONSCIOUSNESS [None]
  - FEBRILE NEUTROPENIA [None]
  - HYPOXIA [None]
  - MUCOSAL INFLAMMATION [None]
  - PANCYTOPENIA [None]
  - RESPIRATORY DISTRESS [None]
  - SUPRAVENTRICULAR TACHYCARDIA [None]
  - TACHYCARDIA [None]
  - VARICELLA [None]
